FAERS Safety Report 7244729-9 (Version None)
Quarter: 2011Q1

REPORT INFORMATION
  Report Type: 
  Country: None (occurrence: None)
  Receive Date: 20110126
  Receipt Date: 20110119
  Transmission Date: 20110831
  Serious: No
  Sender: FDA-Public Use
  Company Number: US-BIOGENIDEC-2010BI014787

PATIENT
  Age: 58 Year
  Sex: Female

DRUGS (2)
  1. TYSABRI [Suspect]
     Indication: MULTIPLE SCLEROSIS
     Route: 042
     Dates: start: 20090902
  2. BENADRYL [Concomitant]
     Indication: PREMEDICATION

REACTIONS (10)
  - INFUSION SITE EXFOLIATION [None]
  - INSOMNIA [None]
  - HEADACHE [None]
  - ASTHENIA [None]
  - MULTIPLE SCLEROSIS RELAPSE [None]
  - POOR VENOUS ACCESS [None]
  - NECK PAIN [None]
  - ARTHRALGIA [None]
  - MIGRAINE [None]
  - RASH [None]
